FAERS Safety Report 4805929-8 (Version None)
Quarter: 2005Q4

REPORT INFORMATION
  Report Type: 
  Country: None (occurrence: None)
  Receive Date: 20051019
  Receipt Date: 20051004
  Transmission Date: 20060501
  Serious: Yes (Hospitalization, Other)
  Sender: FDA-Public Use
  Company Number: USA0510109916

PATIENT
  Age: 70 Year
  Sex: Female

DRUGS (1)
  1. FORTEO [Suspect]
     Indication: OSTEOPOROSIS
     Dates: start: 20050801

REACTIONS (9)
  - DEVICE MIGRATION [None]
  - DIFFICULTY IN WALKING [None]
  - IMMOBILE [None]
  - IMPAIRED HEALING [None]
  - MUSCLE INJURY [None]
  - NERVE COMPRESSION [None]
  - PAIN IN EXTREMITY [None]
  - PATHOLOGICAL FRACTURE [None]
  - POSTOPERATIVE INFECTION [None]
